FAERS Safety Report 10156738 (Version 1)
Quarter: 2014Q2

REPORT INFORMATION
  Report Type: Spontaneous
  Country: CN (occurrence: None)
  Receive Date: 20140505
  Receipt Date: 20140505
  Transmission Date: 20141212
  Serious: Yes (Hospitalization)
  Sender: FDA-Public Use
  Company Number: SYM-2014-20219

PATIENT
  Age: 65 Year
  Sex: Female

DRUGS (2)
  1. HERBESSER / DILTIAZEM HYDROCHLORIDE [Suspect]
     Indication: CORONARY ARTERY DISEASE
     Route: 048
     Dates: start: 20130728, end: 20130728
  2. SODIUM CHLORIDE (SODIUM CHLORIDE) [Concomitant]

REACTIONS (5)
  - Hypotension [None]
  - Vertigo [None]
  - Flushing [None]
  - Nausea [None]
  - Vomiting [None]
